FAERS Safety Report 7671653-X (Version None)
Quarter: 2011Q3

REPORT INFORMATION
  Report Type: 
  Country: None (occurrence: None)
  Receive Date: 20110809
  Receipt Date: 20100317
  Transmission Date: 20111222
  Serious: No
  Sender: FDA-Public Use
  Company Number: US-BAYER-201017757NA

PATIENT
  Sex: Female

DRUGS (1)
  1. MIRENA [Suspect]
     Indication: CONTRACEPTION
     Dosage: 20 ?G/D, CONT
     Route: 015
     Dates: start: 20091016, end: 20100331

REACTIONS (7)
  - ABDOMINAL DISTENSION [None]
  - BREAST SWELLING [None]
  - HEADACHE [None]
  - MOOD ALTERED [None]
  - MENSTRUATION IRREGULAR [None]
  - WEIGHT INCREASED [None]
  - ABDOMINAL PAIN [None]
